FAERS Safety Report 21524777 (Version 2)
Quarter: 2022Q4

REPORT INFORMATION
  Report Type: Spontaneous
  Country: US (occurrence: US)
  Receive Date: 20221030
  Receipt Date: 20221128
  Transmission Date: 20230113
  Serious: No
  Sender: FDA-Public Use
  Company Number: US-SA-SAC20221024000357

PATIENT
  Age: 26 Year
  Sex: Male

DRUGS (1)
  1. DUPIXENT [Suspect]
     Active Substance: DUPILUMAB
     Indication: Eczema
     Dosage: 300 MG FREQUENCY: OTHER
     Route: 058

REACTIONS (7)
  - Dry skin [Unknown]
  - Cold sweat [Unknown]
  - Eye discharge [Unknown]
  - Pruritus [Unknown]
  - Ocular hyperaemia [Unknown]
  - Eye pruritus [Unknown]
  - Therapeutic response decreased [Unknown]
